FAERS Safety Report 10997767 (Version 1)
Quarter: 2015Q2

REPORT INFORMATION
  Report Type: Spontaneous
  Country: BR (occurrence: BR)
  Receive Date: 20150408
  Receipt Date: 20150408
  Transmission Date: 20150821
  Serious: Yes (Hospitalization, Other)
  Sender: FDA-Public Use
  Company Number: BR-ELI_LILLY_AND_COMPANY-BR201503009892

PATIENT
  Age: 49 Year
  Sex: Female
  Weight: 69 kg

DRUGS (4)
  1. RIVOTRIL [Concomitant]
     Active Substance: CLONAZEPAM
     Indication: PRODUCT USED FOR UNKNOWN INDICATION
     Dosage: UNK, UNKNOWN
     Route: 065
  2. CYMBALTA [Suspect]
     Active Substance: DULOXETINE HYDROCHLORIDE
     Indication: DEPRESSION
     Dosage: 60 MG, BID
     Route: 048
     Dates: start: 2006, end: 20150306
  3. CYMBALTA [Suspect]
     Active Substance: DULOXETINE HYDROCHLORIDE
     Indication: SEIZURE
  4. CYMBALTA [Suspect]
     Active Substance: DULOXETINE HYDROCHLORIDE
     Indication: FEELING ABNORMAL

REACTIONS (15)
  - Seizure [Not Recovered/Not Resolved]
  - Aggression [Unknown]
  - Memory impairment [Unknown]
  - Head injury [Unknown]
  - Nervousness [Unknown]
  - Suicide attempt [Unknown]
  - Gastritis [Not Recovered/Not Resolved]
  - Dizziness [Unknown]
  - Malaise [Unknown]
  - Depression [Recovered/Resolved]
  - Suicidal ideation [Recovered/Resolved]
  - Loss of consciousness [Unknown]
  - Gastric dilatation [Not Recovered/Not Resolved]
  - Depression [Unknown]
  - Fall [Unknown]

NARRATIVE: CASE EVENT DATE: 2006
